FAERS Safety Report 11301170 (Version 1)
Quarter: 2015Q3

REPORT INFORMATION
  Report Type: Spontaneous
  Country: US (occurrence: US)
  Receive Date: 20150722
  Receipt Date: 20150722
  Transmission Date: 20151125
  Serious: Yes (Other)
  Sender: FDA-Public Use
  Company Number: US-ELI_LILLY_AND_COMPANY-US201108007640

PATIENT
  Sex: Male
  Weight: 15.1 kg

DRUGS (2)
  1. MULTIVITAMIN [Concomitant]
     Active Substance: VITAMINS
  2. HUMATROPE [Suspect]
     Active Substance: SOMATROPIN
     Indication: GROWTH HORMONE DEFICIENCY
     Dosage: 0.7 DF, 6X PER WEEK
     Route: 058
     Dates: start: 201010, end: 20110510

REACTIONS (2)
  - Papilloedema [Recovering/Resolving]
  - Benign intracranial hypertension [Unknown]
